FAERS Safety Report 5756940-4 (Version None)
Quarter: 2008Q2

REPORT INFORMATION
  Report Type: 
  Country: None (occurrence: None)
  Receive Date: 20080603
  Receipt Date: 20080524
  Transmission Date: 20081010
  Serious: Yes (Other)
  Sender: FDA-Public Use
  Company Number: DE-ABBOTT-07P-062-0366085-00

PATIENT
  Sex: Male
  Weight: 70 kg

DRUGS (10)
  1. ZEMPLAR [Suspect]
     Indication: HYPERPARATHYROIDISM SECONDARY
     Route: 042
     Dates: start: 20060717, end: 20061112
  2. ZEMPLAR [Suspect]
     Route: 042
     Dates: start: 20061113
  3. VITARENAL [Concomitant]
     Indication: VITAMIN SUPPLEMENTATION
     Dates: start: 20050610
  4. AMLO TAD [Concomitant]
     Indication: HYPERTENSION
     Dates: start: 20050812
  5. CARVE TAD 25MG [Concomitant]
     Indication: CARDIAC FAILURE
     Dates: start: 20050812
  6. RAMI TAD [Concomitant]
     Indication: HYPERTENSION
     Dates: start: 20050812
  7. SIMVA TAD [Concomitant]
     Indication: HYPERLIPIDAEMIA
     Dates: start: 20050812
  8. CA(CH3C00) [Concomitant]
     Indication: DRUG USE FOR UNKNOWN INDICATION
     Dates: start: 20051101
  9. NEXIUM [Concomitant]
     Indication: PROPHYLAXIS AGAINST GASTROINTESTINAL ULCER
     Dosage: HALF IN THE MORNING AND HALF AT NIGHT
     Dates: start: 20060329
  10. TORASEMID 200MG [Concomitant]
     Indication: DRUG USE FOR UNKNOWN INDICATION
     Dates: start: 20060405

REACTIONS (1)
  - PERIPHERAL ARTERIAL OCCLUSIVE DISEASE [None]
